FAERS Safety Report 14599146 (Version 2)
Quarter: 2018Q1

REPORT INFORMATION
  Report Type: Spontaneous
  Country: DE (occurrence: DE)
  Receive Date: 20180305
  Receipt Date: 20180319
  Transmission Date: 20180509
  Serious: Yes (Death)
  Sender: FDA-Public Use
  Company Number: DE-SA-2018SA056100

PATIENT
  Age: 59 Year
  Sex: Male

DRUGS (12)
  1. PRALUENT [Suspect]
     Active Substance: ALIROCUMAB
     Indication: HYPERCHOLESTEROLAEMIA
     Route: 058
     Dates: end: 20180106
  2. PREDNISOLONE. [Concomitant]
     Active Substance: PREDNISOLONE
  3. SPIOLTO [Concomitant]
     Active Substance: OLODATEROL HYDROCHLORIDE\TIOTROPIUM BROMIDE MONOHYDRATE
  4. VALSARTAN. [Concomitant]
     Active Substance: VALSARTAN
  5. PRALUENT [Suspect]
     Active Substance: ALIROCUMAB
     Indication: HYPERCHOLESTEROLAEMIA
     Route: 058
  6. FORMOTEROL [Concomitant]
     Active Substance: FORMOTEROL
  7. SALBUTAMOL [Concomitant]
     Active Substance: ALBUTEROL
  8. OMACOR [Concomitant]
     Active Substance: OMEGA-3-ACID ETHYL ESTERS
  9. LERCANIDIPINE [Concomitant]
     Active Substance: LERCANIDIPINE
  10. NEBIVOLOL. [Concomitant]
     Active Substance: NEBIVOLOL
  11. ALIROCUMAB PREFILLED PEN [Suspect]
     Active Substance: ALIROCUMAB
     Indication: HYPERCHOLESTEROLAEMIA
  12. ALIROCUMAB PREFILLED PEN [Suspect]
     Active Substance: ALIROCUMAB
     Indication: HYPERCHOLESTEROLAEMIA
     Dates: end: 20180106

REACTIONS (1)
  - Hypercholesterolaemia [Fatal]
